FAERS Safety Report 6080456-1 (Version None)
Quarter: 2009Q1

REPORT INFORMATION
  Report Type: 
  Country: None (occurrence: None)
  Receive Date: 20090217
  Receipt Date: 20090210
  Transmission Date: 20090719
  Serious: Yes (Hospitalization, Disabling, Other)
  Sender: FDA-Public Use
  Company Number: PHHO2007US12054

PATIENT
  Sex: Female
  Weight: 96 kg

DRUGS (2)
  1. ZOLEDRONIC ACID [Suspect]
     Indication: BREAST CANCER
     Dosage: 4 MG INFUSION
     Dates: start: 20030127
  2. FEMARA [Suspect]
     Dosage: 2.5 MG, QD
     Route: 048
     Dates: start: 20030127

REACTIONS (10)
  - BONE DENSITY DECREASED [None]
  - BUNDLE BRANCH BLOCK RIGHT [None]
  - CARDIOMEGALY [None]
  - CAROTID ARTERY STENOSIS [None]
  - CEREBRAL ATROPHY [None]
  - DRUG INEFFECTIVE [None]
  - HYPERTENSION [None]
  - SCOLIOSIS [None]
  - SPINAL OSTEOARTHRITIS [None]
  - SYNCOPE [None]
